FAERS Safety Report 8963368 (Version 5)
Quarter: 2013Q4

REPORT INFORMATION
  Report Type: Report from Study
  Country: FR (occurrence: FR)
  Receive Date: 20121214
  Receipt Date: 20131007
  Transmission Date: 20140711
  Serious: Yes (Hospitalization, Disabling, Other)
  Sender: FDA-Public Use
  Company Number: FR-BIOGENIDEC-2012BI059390

PATIENT
  Age: 46 Year
  Sex: Female
  Weight: 54 kg

DRUGS (17)
  1. TYSABRI [Suspect]
     Indication: MULTIPLE SCLEROSIS
     Route: 042
     Dates: start: 20071004, end: 20120720
  2. IBUPROFEN [Concomitant]
     Indication: HEADACHE
     Route: 048
  3. ACICLOVIR [Concomitant]
     Indication: GENITAL HERPES
     Route: 048
  4. MUSCLE RELAXANTS [Concomitant]
  5. SOLUMEDROL [Concomitant]
     Indication: MULTIPLE SCLEROSIS
     Route: 042
     Dates: start: 2012
  6. DOLIPRANE [Concomitant]
     Dates: start: 201210
  7. ACUPAN [Concomitant]
     Indication: PAIN
  8. SKENAN [Concomitant]
     Dates: start: 20130411
  9. SKENAN [Concomitant]
     Dates: start: 20130411
  10. MICROLAX [Concomitant]
     Dates: start: 20130411
  11. FORLAX [Concomitant]
     Indication: CONSTIPATION
     Dates: start: 20130411
  12. INEXIUM [Concomitant]
     Dates: start: 20130411
  13. LOPERAMIDE [Concomitant]
     Dates: start: 20121203
  14. MORPHINE [Concomitant]
  15. PREDNISOLON [Concomitant]
  16. NEULASTA [Concomitant]
  17. KALEORID [Concomitant]

REACTIONS (1)
  - Invasive ductal breast carcinoma [Recovered/Resolved]
